FAERS Safety Report 6121982-6 (Version None)
Quarter: 2009Q1

REPORT INFORMATION
  Report Type: 
  Country: None (occurrence: None)
  Receive Date: 20090317
  Receipt Date: 20090309
  Transmission Date: 20090719
  Serious: Yes (Hospitalization)
  Sender: FDA-Public Use
  Company Number: FR-ABBOTT-09P-056-0561370-00

PATIENT
  Age: 33 Year
  Sex: Female

DRUGS (3)
  1. KALETRA [Suspect]
     Indication: HIV INFECTION
     Route: 048
     Dates: start: 20080721
  2. DIHYDROERGOCRYPTINE W/ CAFEINE [Interacting]
     Indication: SUPPRESSED LACTATION
     Dates: start: 20081212
  3. LAMIVUDINE + ZIDOVUDINE [Concomitant]
     Indication: HIV INFECTION
     Route: 048
     Dates: start: 20080721

REACTIONS (2)
  - ORTHOSTATIC HYPOTENSION [None]
  - VERTIGO [None]
